FAERS Safety Report 25314115 (Version 6)
Quarter: 2025Q3

REPORT INFORMATION
  Report Type: Spontaneous
  Country: US (occurrence: US)
  Receive Date: 20250514
  Receipt Date: 20250715
  Transmission Date: 20251021
  Serious: No
  Sender: PFIZER
  Company Number: US-PFIZER INC-PV202500028371

PATIENT
  Age: 60 Year
  Sex: Female

DRUGS (9)
  1. PREMARIN [Suspect]
     Active Substance: ESTROGENS, CONJUGATED
     Dosage: 0.5 G, DAILY, FOR 2 WEEKS
     Route: 067
  2. PREMARIN [Suspect]
     Active Substance: ESTROGENS, CONJUGATED
     Dosage: 0.5 G, 2X/WEEK, THEREAFTER
     Route: 067
     Dates: start: 20250317
  3. PEPCID [Concomitant]
     Active Substance: FAMOTIDINE
  4. CLARITHROMYCIN [Concomitant]
     Active Substance: CLARITHROMYCIN
  5. QVAR [Concomitant]
     Active Substance: BECLOMETHASONE DIPROPIONATE
  6. FLEXERIL [Concomitant]
     Active Substance: CYCLOBENZAPRINE HYDROCHLORIDE
  7. CELEBREX [Concomitant]
     Active Substance: CELECOXIB
  8. METOPROLOL SUCCINATE [Concomitant]
     Active Substance: METOPROLOL SUCCINATE
  9. LISINOPRIL [Concomitant]
     Active Substance: LISINOPRIL

REACTIONS (6)
  - Drug ineffective [Unknown]
  - Poor quality product administered [Unknown]
  - Product physical consistency issue [Unknown]
  - Incorrect dose administered [Unknown]
  - Product cleaning inadequate [Unknown]
  - Off label use [Unknown]

NARRATIVE: CASE EVENT DATE: 20250317
